FAERS Safety Report 9133691 (Version 1)
Quarter: 2013Q1

REPORT INFORMATION
  Report Type: Spontaneous
  Country: US (occurrence: US)
  Receive Date: 20130302
  Receipt Date: 20130302
  Transmission Date: 20140127
  Serious: Yes (Death, Hospitalization)
  Sender: FDA-Public Use
  Company Number: US-US-EMD SERONO, INC.-234117J08USA

PATIENT
  Age: 54 Year
  Sex: Female
  Weight: 83 kg

DRUGS (5)
  1. REBIF [Suspect]
     Indication: MULTIPLE SCLEROSIS
     Route: 058
     Dates: start: 200801, end: 200907
  2. REQUIP [Concomitant]
     Indication: RESTLESS LEGS SYNDROME
     Route: 065
  3. MIRAPEX [Concomitant]
     Indication: RESTLESS LEGS SYNDROME
     Route: 065
  4. LIDODERM PATCHES [Concomitant]
     Indication: MUSCLE SPASMS
     Route: 065
  5. AVONEX [Concomitant]
     Indication: MULTIPLE SCLEROSIS
     Route: 030
     Dates: start: 200908

REACTIONS (3)
  - Adenocarcinoma of colon [Fatal]
  - Diarrhoea [Recovering/Resolving]
  - Dehydration [Recovering/Resolving]
